FAERS Safety Report 19422357 (Version 1)
Quarter: 2021Q2

REPORT INFORMATION
  Report Type: Spontaneous
  Country: GB (occurrence: GB)
  Receive Date: 20210616
  Receipt Date: 20210616
  Transmission Date: 20210717
  Serious: Yes (Other)
  Sender: FDA-Public Use
  Company Number: GB-GLAXOSMITHKLINE-GB2021130098

PATIENT
  Age: 21 Year
  Sex: Female
  Weight: 137 kg

DRUGS (1)
  1. BENZOYL PEROXIDE + CLINDAMYCIN PHOSPHATE [Suspect]
     Active Substance: BENZOYL PEROXIDE\CLINDAMYCIN PHOSPHATE
     Indication: PRODUCT USED FOR UNKNOWN INDICATION
     Dosage: UNK
     Route: 065
     Dates: start: 20200914

REACTIONS (1)
  - Thermal burn [Recovered/Resolved]

NARRATIVE: CASE EVENT DATE: 20200916
